FAERS Safety Report 15270162 (Version 2)
Quarter: 2019Q1

REPORT INFORMATION
  Report Type: Spontaneous
  Country: US (occurrence: US)
  Receive Date: 20180813
  Receipt Date: 20190328
  Transmission Date: 20190417
  Serious: Yes (Hospitalization, Other)
  Sender: FDA-Public Use
  Company Number: US-PFIZER INC-2018321710

PATIENT
  Age: 81 Year
  Sex: Female
  Weight: 63.5 kg

DRUGS (3)
  1. TIKOSYN [Suspect]
     Active Substance: DOFETILIDE
     Dosage: 125 UG, 2X/DAY (125 MCG Q 12)
     Route: 048
  2. COUMADIN [Concomitant]
     Active Substance: WARFARIN SODIUM
     Dosage: UNK
  3. TIKOSYN [Suspect]
     Active Substance: DOFETILIDE
     Indication: ATRIAL FIBRILLATION
     Dosage: 250 UG, 2X/DAY (250 MCG Q 12 HOUR)
     Dates: start: 20180711

REACTIONS (9)
  - Cystitis escherichia [Recovered/Resolved]
  - Escherichia bacteraemia [Recovered/Resolved]
  - Malaise [Unknown]
  - Body height decreased [Unknown]
  - Kidney infection [Recovered/Resolved]
  - Electrocardiogram QT prolonged [Unknown]
  - Muscle spasms [Unknown]
  - Weight decreased [Unknown]
  - Asthenia [Unknown]
